FAERS Safety Report 9099930 (Version 1)
Quarter: 2013Q1

REPORT INFORMATION
  Report Type: Spontaneous
  Country: JP (occurrence: JP)
  Receive Date: 20130215
  Receipt Date: 20130215
  Transmission Date: 20140127
  Serious: Yes (Hospitalization)
  Sender: FDA-Public Use
  Company Number: JP-ASTRAZENECA-2012SE80427

PATIENT
  Age: 60 Year
  Sex: Female
  Weight: 52 kg

DRUGS (4)
  1. ANAPEINE [Suspect]
     Indication: NERVE BLOCK
     Route: 053
  2. SUGAMMADEX SODIUM [Suspect]
     Dosage: 4 MG/KG
     Route: 065
  3. FENTANYL [Concomitant]
     Indication: ANALGESIC THERAPY
     Dosage: 25 MCG/HR
     Route: 042
  4. PROPOFOL [Concomitant]
     Route: 065

REACTIONS (6)
  - Laryngeal oedema [Unknown]
  - Anaphylactic reaction [Unknown]
  - Cyanosis [Unknown]
  - Depressed level of consciousness [Unknown]
  - Blood pressure increased [Unknown]
  - Tachycardia [Unknown]
